FAERS Safety Report 6345532-4 (Version None)
Quarter: 2009Q3

REPORT INFORMATION
  Report Type: 
  Country: None (occurrence: None)
  Receive Date: 20090909
  Receipt Date: 20090827
  Transmission Date: 20100115
  Serious: Yes (Hospitalization)
  Sender: FDA-Public Use
  Company Number: CH-PFIZER INC-2009260345

PATIENT
  Age: 63 Year

DRUGS (19)
  1. SOLU-MEDROL [Suspect]
     Dosage: 500 MG, 1X/DAY
     Route: 042
     Dates: start: 20090321, end: 20090323
  2. PREDNISONE [Suspect]
     Dosage: 35 MG, 1X/DAY
     Route: 048
     Dates: start: 20090323, end: 20090420
  3. PREDNISONE [Suspect]
     Dosage: 30 MG, 1X/DAY
     Route: 048
     Dates: start: 20090420, end: 20090503
  4. PREDNISONE [Suspect]
     Dosage: 25 MG, 1X/DAY
     Route: 048
     Dates: start: 20090504, end: 20090517
  5. PREDNISONE [Suspect]
     Dosage: 22.5 MG, 1X/DAY
     Route: 048
     Dates: start: 20090518, end: 20090524
  6. PREDNISONE [Suspect]
     Dosage: 20 MG, 1X/DAY
     Route: 048
     Dates: start: 20090525, end: 20090531
  7. PREDNISONE [Suspect]
     Dosage: 17.5 MG, 1X/DAY
     Route: 048
     Dates: start: 20090601, end: 20090610
  8. PREDNISONE [Suspect]
     Dosage: 15 MG, 1X/DAY
     Route: 048
     Dates: start: 20090611
  9. PREDNISONE [Suspect]
  10. ENDOXAN [Suspect]
     Indication: SYSTEMIC LUPUS ERYTHEMATOSUS
     Dosage: 1200 MG, 1X/DAY
     Route: 042
     Dates: start: 20090323, end: 20090323
  11. ENDOXAN [Suspect]
     Dosage: 500 MG, CYCLIC
     Route: 042
     Dates: start: 20090420, end: 20090602
  12. APROVEL [Concomitant]
     Indication: PROTEINURIA
     Route: 048
  13. ACTONEL [Concomitant]
     Route: 048
  14. LIVIAL [Concomitant]
     Route: 048
  15. CALCIMAGON-D3 [Concomitant]
     Route: 048
  16. CITALOPRAM [Concomitant]
     Indication: DEPRESSION
     Dosage: 20 MG, 1X/DAY
     Dates: start: 19990101, end: 20060101
  17. CITALOPRAM [Concomitant]
     Dosage: 40 MG, 1X/DAY
     Dates: start: 20060101
  18. AZATHIOPRINE [Concomitant]
     Dosage: 100 MG, 1X/DAY
     Route: 048
  19. AZATHIOPRINE [Concomitant]
     Dosage: 150 MG, 1X/DAY
     Route: 048

REACTIONS (2)
  - DEPRESSION [None]
  - PSYCHOTIC DISORDER [None]
